FAERS Safety Report 6042636-0 (Version None)
Quarter: 2009Q1

REPORT INFORMATION
  Report Type: 
  Country: None (occurrence: None)
  Receive Date: 20090119
  Receipt Date: 20090106
  Transmission Date: 20090719
  Serious: Yes (Other)
  Sender: FDA-Public Use
  Company Number: PHEH2007US05484

PATIENT
  Sex: Male

DRUGS (14)
  1. ZOMETA [Suspect]
  2. AREDIA [Suspect]
  3. CASODEX [Concomitant]
     Dosage: 50 MG, UNK
     Dates: start: 19970101
  4. AUGMENTIN                               /SCH/ [Concomitant]
     Dosage: 875 MG, UNK
     Dates: start: 19990101
  5. CATAPRES-TTS-3 [Concomitant]
     Dosage: UNK
     Dates: start: 19970101
  6. PENICILLIN VK [Concomitant]
     Dosage: 500 MG, UNK
     Dates: start: 19970101
  7. HYDROCODONE BITARTRATE AND ACETAMINOPHEN [Concomitant]
     Dosage: 5/500 MG
     Dates: start: 19970101
  8. METHOCARBAMOL [Concomitant]
     Dosage: 750 MG, UNK
     Dates: start: 20020101
  9. VICOPROFEN [Concomitant]
     Dosage: 7.5 MG, UNK
     Dates: start: 20020101
  10. GLUCOVANCE [Concomitant]
     Dosage: 2.5 MG, UNK
     Dates: start: 20020101
  11. GEMFIBROZIL [Concomitant]
     Dosage: 600 MG, UNK
     Dates: start: 20030101
  12. GLYBURIDE AND METFORMIN HCL [Concomitant]
     Dosage: 25./ 500 MG
     Dates: start: 20040101
  13. VYTORIN [Concomitant]
     Dosage: 10 MG, UNK
     Dates: start: 20050101
  14. CHLORHEXIDINE GLUCONATE [Concomitant]
     Dosage: UNK
     Dates: start: 20060101

REACTIONS (7)
  - ANXIETY [None]
  - CHEST X-RAY ABNORMAL [None]
  - ELECTROCARDIOGRAM QRS COMPLEX ABNORMAL [None]
  - INJURY [None]
  - MUSCULOSKELETAL CHEST PAIN [None]
  - OSTEONECROSIS [None]
  - PAIN [None]
